FAERS Safety Report 8820889 (Version 1)
Quarter: 2012Q4

REPORT INFORMATION
  Report Type: 
  Country: HR (occurrence: HR)
  Receive Date: 20121002
  Receipt Date: 20121002
  Transmission Date: 20130627
  Serious: Yes (Hospitalization)
  Sender: FDA-Public Use
  Company Number: HR-PFIZER INC-2012241637

PATIENT
  Age: 74 Year
  Sex: Male

DRUGS (9)
  1. CONTROLOC [Suspect]
     Indication: GASTRITIS
     Dosage: 40 mg, UNK
     Route: 065
     Dates: start: 20120625, end: 20120720
  2. MARTEFARIN [Interacting]
     Indication: ARTERIAL BYPASS OPERATION
     Dosage: 3 mg, 4 in 1 week
     Route: 048
     Dates: start: 20060210
  3. MARTEFARIN [Interacting]
     Indication: THROMBOSIS PROPHYLAXIS
     Dosage: 1.5 mg, 3 in 1 week
     Route: 048
  4. ALLOPURINOL [Interacting]
     Dosage: UNK
  5. APAURIN [Concomitant]
  6. CO-DIOVAN [Concomitant]
     Dosage: UNK
  7. TULIP [Concomitant]
     Dosage: UNK
  8. TONOCARDIN [Concomitant]
     Dosage: UNK
  9. NEBILET [Concomitant]
     Dosage: UNK

REACTIONS (3)
  - International normalised ratio increased [Recovered/Resolved]
  - Drug interaction [Recovered/Resolved]
  - Overdose [Recovered/Resolved]
